FAERS Safety Report 6300402-2 (Version None)
Quarter: 2009Q3

REPORT INFORMATION
  Report Type: 
  Country: None (occurrence: None)
  Receive Date: 20090803
  Receipt Date: 20090803
  Transmission Date: 20100115
  Serious: Yes (Hospitalization)
  Sender: FDA-Public Use
  Company Number: 1-19229015

PATIENT
  Sex: Female

DRUGS (1)
  1. METFORMIN HCL [Suspect]
     Indication: INTENTIONAL OVERDOSE
     Dosage: 1000 MG, ORAL
     Route: 048

REACTIONS (14)
  - BLOOD CHLORIDE DECREASED [None]
  - BLOOD GLUCOSE DECREASED [None]
  - BLOOD SODIUM DECREASED [None]
  - CONTINUOUS HAEMODIAFILTRATION [None]
  - DECREASED APPETITE [None]
  - HAEMODIALYSIS [None]
  - HYPOTHERMIA [None]
  - INTENTIONAL OVERDOSE [None]
  - LACTIC ACIDOSIS [None]
  - LETHARGY [None]
  - METABOLIC ACIDOSIS [None]
  - OLIGURIA [None]
  - RENAL IMPAIRMENT [None]
  - SUICIDE ATTEMPT [None]
